FAERS Safety Report 9629605 (Version 1)
Quarter: 2013Q4

REPORT INFORMATION
  Report Type: Spontaneous
  Country: GB (occurrence: GB)
  Receive Date: 20131017
  Receipt Date: 20131017
  Transmission Date: 20140711
  Serious: Yes (Other)
  Sender: FDA-Public Use
  Company Number: GB-WATSON-2013-18889

PATIENT
  Age: 79 Year
  Sex: Male

DRUGS (9)
  1. TRIMETHOPRIM (UNKNOWN) [Suspect]
     Indication: URINARY TRACT INFECTION
     Dosage: 1 DF, TID
     Route: 048
     Dates: start: 20130204, end: 20130215
  2. MADOPAR [Interacting]
     Indication: PARKINSON^S DISEASE
     Dosage: 3 DF, DAILY
     Route: 048
  3. MADOPAR [Interacting]
     Dosage: 3 DF, DAILY
     Route: 048
     Dates: start: 20130201
  4. ROTIGOTINE [Concomitant]
     Indication: PARKINSON^S DISEASE
     Dosage: 6 MG, DAILY
     Route: 061
     Dates: start: 20130201
  5. ROTIGOTINE [Concomitant]
     Dosage: 8 MG, DAILY
     Route: 061
     Dates: start: 20130307
  6. ROTIGOTINE [Concomitant]
     Dosage: 10 MG, DAILY
     Route: 061
     Dates: start: 20130402
  7. LEVOTHYROXINE [Concomitant]
     Indication: THYROID DISORDER
     Dosage: 1 DF, UNKNOWN
     Route: 048
  8. LANSOPRAZOLE [Concomitant]
     Indication: GASTRITIS EROSIVE
     Dosage: UNK
     Route: 065
  9. CO-AMILOFRUSE [Concomitant]
     Indication: DIURETIC THERAPY
     Dosage: UNK
     Route: 065

REACTIONS (2)
  - Hallucination [Recovered/Resolved]
  - Drug interaction [Recovered/Resolved]
